FAERS Safety Report 5491986-5 (Version None)
Quarter: 2007Q4

REPORT INFORMATION
  Report Type: 
  Country: None (occurrence: None)
  Receive Date: 20071022
  Receipt Date: 20071011
  Transmission Date: 20080405
  Serious: Yes (Death)
  Sender: FDA-Public Use
  Company Number: B0389040A

PATIENT
  Age: 72 Year
  Sex: Male

DRUGS (4)
  1. AVANDIA [Suspect]
     Indication: DIABETES MELLITUS
     Dosage: 4MG PER DAY
     Route: 065
     Dates: start: 20040123, end: 20050126
  2. LOSEC [Concomitant]
     Dosage: 40MG PER DAY
     Route: 065
     Dates: start: 20010503
  3. ACETYLSALICYLIC ACID [Concomitant]
     Dosage: 80MG PER DAY
     Route: 065
     Dates: start: 20011005
  4. HYZAAR [Concomitant]
     Route: 065
     Dates: start: 20030117

REACTIONS (3)
  - COR PULMONALE ACUTE [None]
  - RIGHT VENTRICULAR FAILURE [None]
  - SHOCK [None]
